FAERS Safety Report 6766740-4 (Version None)
Quarter: 2010Q2

REPORT INFORMATION
  Report Type: 
  Country: None (occurrence: None)
  Receive Date: 20100611
  Receipt Date: 20100602
  Transmission Date: 20101027
  Serious: Yes (Other)
  Sender: FDA-Public Use
  Company Number: US-JNJFOC-20100601595

PATIENT
  Age: 28 Year
  Sex: Male

DRUGS (3)
  1. INVEGA SUSTENNA [Suspect]
     Indication: SCHIZOAFFECTIVE DISORDER
     Route: 030
  2. INVEGA SUSTENNA [Suspect]
     Route: 030
  3. UNSPECIFIED MEDICATIONS FOR HIV [Concomitant]
     Indication: HIV INFECTION

REACTIONS (3)
  - DROOLING [None]
  - GAIT DISTURBANCE [None]
  - TARDIVE DYSKINESIA [None]
